FAERS Safety Report 21221816 (Version 4)
Quarter: 2023Q1

REPORT INFORMATION
  Report Type: Report from Study
  Country: US (occurrence: US)
  Receive Date: 20220817
  Receipt Date: 20230213
  Transmission Date: 20230417
  Serious: Yes (Hospitalization, Other)
  Sender: FDA-Public Use
  Company Number: US-BIOVITRUM-2022US09593

PATIENT
  Age: 41 Year
  Sex: Female

DRUGS (2)
  1. KINERET [Suspect]
     Active Substance: ANAKINRA
     Indication: Product used for unknown indication
     Dates: start: 20220602
  2. KINERET [Suspect]
     Active Substance: ANAKINRA
     Dates: start: 20230109

REACTIONS (7)
  - Abdominal pain [Unknown]
  - Pyrexia [Unknown]
  - Hypotension [Unknown]
  - Blood albumin decreased [Unknown]
  - Septic shock [Unknown]
  - Hepatic enzyme increased [Unknown]
  - Product use issue [Unknown]

NARRATIVE: CASE EVENT DATE: 20220807
